FAERS Safety Report 7483779-4 (Version None)
Quarter: 2011Q2

REPORT INFORMATION
  Report Type: 
  Country: None (occurrence: None)
  Receive Date: 20110517
  Receipt Date: 20110512
  Transmission Date: 20111010
  Serious: Yes (Death, Hospitalization)
  Sender: FDA-Public Use
  Company Number: PHHY2011MX40657

PATIENT
  Sex: Male

DRUGS (3)
  1. MINIPRESS [Concomitant]
  2. SELOKEN [Concomitant]
  3. DIOVAN HCT [Suspect]
     Indication: HYPERTENSION
     Dosage: 160 MG VALS AND 25 MG HYDR (2 DF DAILY)
     Dates: start: 20100617

REACTIONS (3)
  - ANGIOPATHY [None]
  - PNEUMONIA [None]
  - VENTRICULAR DYSFUNCTION [None]
